FAERS Safety Report 9111208 (Version 1)
Quarter: 2013Q1

REPORT INFORMATION
  Report Type: Spontaneous
  Country: US (occurrence: US)
  Receive Date: 20130219
  Receipt Date: 20130219
  Transmission Date: 20140127
  Serious: Yes (Other)
  Sender: FDA-Public Use
  Company Number: US-BRISTOL-MYERS SQUIBB COMPANY-16379042

PATIENT
  Age: 52 Year
  Sex: Female
  Weight: 79.82 kg

DRUGS (15)
  1. ORENCIA [Suspect]
     Indication: RHEUMATOID ARTHRITIS
     Dosage: DURATION: ATLEAST 2 YRS. LAST INF: 10JAN12.
     Route: 042
  2. FENTANYL PATCH [Concomitant]
     Route: 062
     Dates: start: 20120128
  3. PROMETHAZINE + CODEINE [Concomitant]
     Dosage: 1 DF = 6.25MG-10MG/5ML SYRUP
     Dates: start: 20120120
  4. LEVOFLOXACIN [Concomitant]
     Dosage: TAB
     Dates: start: 20120120
  5. VITAMIN D2 [Concomitant]
     Dosage: CAP,1 DF = 50000 UNIT
     Route: 048
     Dates: start: 20120110
  6. VICODIN [Concomitant]
     Dosage: 1 DF = 5-500MG,2 TABS EVERY 4-6 HOUR
     Route: 048
     Dates: start: 20120110
  7. FOLIC ACID [Concomitant]
     Dosage: TAB
     Route: 048
     Dates: start: 20120110
  8. ACIPHEX [Concomitant]
     Route: 048
     Dates: start: 20111212
  9. LIALDA [Concomitant]
     Route: 048
  10. CANASA [Concomitant]
     Route: 054
  11. BENADRYL [Concomitant]
     Dosage: TAKE 2CAPS EVERY 4 WEEKS
     Route: 048
  12. CLARITIN [Concomitant]
     Route: 048
  13. COLACE [Concomitant]
     Dosage: CAP
     Route: 048
  14. DIAZEPAM [Concomitant]
     Route: 048
  15. IODOQUINOL [Concomitant]
     Route: 061

REACTIONS (2)
  - Pneumonia [Recovering/Resolving]
  - Pleurisy [Recovering/Resolving]
